FAERS Safety Report 24985301 (Version 1)
Quarter: 2025Q1

REPORT INFORMATION
  Report Type: Spontaneous
  Country: TR (occurrence: TR)
  Receive Date: 20250219
  Receipt Date: 20250219
  Transmission Date: 20250409
  Serious: Yes (Other)
  Sender: NOVARTIS
  Company Number: TR-002147023-NVSC2025TR024460

PATIENT
  Age: 6 Month
  Sex: Male

DRUGS (2)
  1. CYCLOSPORINE [Suspect]
     Active Substance: CYCLOSPORINE
     Indication: Haemolytic anaemia
     Route: 065
  2. METHYLPREDNISOLONE [Suspect]
     Active Substance: METHYLPREDNISOLONE
     Indication: Haemolytic anaemia
     Route: 065

REACTIONS (6)
  - Encephalopathy [Unknown]
  - Seizure [Unknown]
  - Nephropathy toxic [Unknown]
  - Hepatitis [Unknown]
  - Autoimmune haemolytic anaemia [Unknown]
  - Product use in unapproved indication [Unknown]
